FAERS Safety Report 16597339 (Version 2)
Quarter: 2019Q3

REPORT INFORMATION
  Report Type: Spontaneous
  Country: PL (occurrence: PL)
  Receive Date: 20190719
  Receipt Date: 20190801
  Transmission Date: 20191004
  Serious: Yes (Other)
  Sender: FDA-Public Use
  Company Number: PL-MYLANLABS-2019M1066790

PATIENT
  Age: 46 Year
  Sex: Female

DRUGS (2)
  1. ZOLEDRONIC ACID [Suspect]
     Active Substance: ZOLEDRONIC ACID
     Dosage: 1 DOSAGE FORM, MONTHLY (UNK, QMO)
     Route: 041
  2. ZOLEDRONIC ACID [Suspect]
     Active Substance: ZOLEDRONIC ACID
     Indication: INVASIVE LOBULAR BREAST CARCINOMA
     Dosage: 4 MILLIGRAM, Q3MONTHS (EVERY 12 WEEKS)
     Route: 065

REACTIONS (5)
  - Malignant neoplasm progression [Unknown]
  - Influenza like illness [Unknown]
  - Metastases to spine [Unknown]
  - Metastases to bone [Unknown]
  - Back pain [Recovered/Resolved]

NARRATIVE: CASE EVENT DATE: 201602
